FAERS Safety Report 7569750-2 (Version None)
Quarter: 2011Q2

REPORT INFORMATION
  Report Type: 
  Country: None (occurrence: None)
  Receive Date: 20110624
  Receipt Date: 20110614
  Transmission Date: 20111010
  Serious: Yes (Other)
  Sender: FDA-Public Use
  Company Number: CA-JNJFOC-20110308249

PATIENT
  Sex: Female
  Weight: 74.39 kg

DRUGS (6)
  1. ATACAND [Concomitant]
     Dates: start: 20101101
  2. PREVACID [Concomitant]
  3. ALDACTONE [Concomitant]
     Indication: RASH PUSTULAR
     Dates: start: 20100701
  4. STELARA [Suspect]
     Indication: PSORIASIS
     Route: 058
     Dates: start: 20110307
  5. WELLBUTRIN [Concomitant]
     Dates: start: 20100701
  6. ACCUTANE [Concomitant]
     Indication: RASH PUSTULAR
     Dates: start: 20100701

REACTIONS (3)
  - RASH PUSTULAR [None]
  - ECZEMA [None]
  - DRY SKIN [None]
